FAERS Safety Report 5793121-2 (Version None)
Quarter: 2008Q2

REPORT INFORMATION
  Report Type: 
  Country: None (occurrence: None)
  Receive Date: 20080627
  Receipt Date: 20080328
  Transmission Date: 20081010
  Serious: Yes (Hospitalization, Other)
  Sender: FDA-Public Use
  Company Number: A0710269A

PATIENT
  Age: 26 Year
  Sex: Male
  Weight: 111.4 kg

DRUGS (2)
  1. FLOVENT [Suspect]
     Indication: ASTHMA
     Dosage: 2PUFF TWICE PER DAY
     Route: 055
     Dates: start: 20080201
  2. ALBUTEROL [Concomitant]

REACTIONS (1)
  - ANGIOEDEMA [None]
